FAERS Safety Report 22753590 (Version 2)
Quarter: 2023Q4

REPORT INFORMATION
  Report Type: Spontaneous
  Country: US (occurrence: US)
  Receive Date: 20230726
  Receipt Date: 20231226
  Transmission Date: 20240110
  Serious: Yes (Hospitalization, Other)
  Sender: FDA-Public Use
  Company Number: US-AMGEN-USASP2023126609

PATIENT
  Age: 67 Year
  Sex: Female

DRUGS (39)
  1. REPATHA [Suspect]
     Active Substance: EVOLOCUMAB
     Indication: Blood cholesterol increased
     Dosage: 420 MILLIGRAM, QMO
     Route: 058
  2. REPATHA [Suspect]
     Active Substance: EVOLOCUMAB
     Dosage: UNK
     Route: 058
  3. REPATHA [Suspect]
     Active Substance: EVOLOCUMAB
     Dosage: UNK
     Route: 058
  4. FISH OIL [Concomitant]
     Active Substance: FISH OIL
     Indication: Product used for unknown indication
     Dosage: 2000 MILLIGRAM, QD
  5. FISH OIL [Concomitant]
     Active Substance: FISH OIL
  6. FISH OIL [Concomitant]
     Active Substance: FISH OIL
  7. MELATONIN [Concomitant]
     Active Substance: MELATONIN
     Indication: Product used for unknown indication
     Dosage: 10 MILLIGRAM, QD
  8. MELATONIN [Concomitant]
     Active Substance: MELATONIN
     Dosage: 10 MILLIGRAM
  9. MELATONIN [Concomitant]
     Active Substance: MELATONIN
     Dosage: 10 MILLIGRAM
  10. VITAMINS [Concomitant]
     Active Substance: VITAMINS
     Indication: Product used for unknown indication
     Dosage: UNK, QD
  11. VITAMINS [Concomitant]
     Active Substance: VITAMINS
  12. VITAMINS [Concomitant]
     Active Substance: VITAMINS
  13. MAGNESIUM [Concomitant]
     Active Substance: MAGNESIUM
     Indication: Product used for unknown indication
     Dosage: 250 MILLIGRAM
  14. MAGNESIUM [Concomitant]
     Active Substance: MAGNESIUM
  15. MAGNESIUM [Concomitant]
     Active Substance: MAGNESIUM
     Dosage: 250 MILLIGRAM
  16. MAGNESIUM [Concomitant]
     Active Substance: MAGNESIUM
  17. MAGNESIUM [Concomitant]
     Active Substance: MAGNESIUM
     Dosage: 250 MILLIGRAM
  18. HYDROCODONE [Concomitant]
     Active Substance: HYDROCODONE
     Indication: Pain in extremity
     Dosage: 10-325 THREE TIMES DAILY, TID
  19. TIZANIDINE [Concomitant]
     Active Substance: TIZANIDINE
     Indication: Pain in extremity
     Dosage: 22 MILLIGRAM
  20. TIZANIDINE [Concomitant]
     Active Substance: TIZANIDINE
     Indication: Product used for unknown indication
     Dosage: 20 MILLIGRAM
  21. TIZANIDINE [Concomitant]
     Active Substance: TIZANIDINE
     Dosage: 20 MILLIGRAM
  22. NITROGLYCERIN [Concomitant]
     Active Substance: NITROGLYCERIN
     Indication: Chest pain
     Dosage: 4 MILLIGRAM
  23. OMEPRAZOLE [Concomitant]
     Active Substance: OMEPRAZOLE
     Indication: Gastrointestinal disorder
     Dosage: 20 MILLIGRAM, QD
  24. ASPIRIN [Concomitant]
     Active Substance: ASPIRIN
     Indication: Product used for unknown indication
     Dosage: 81 MILLIGRAM, QD
  25. ASPIRIN [Concomitant]
     Active Substance: ASPIRIN
     Dosage: 81 MILLIGRAM
  26. ASPIRIN [Concomitant]
     Active Substance: ASPIRIN
     Dosage: 81 MILLIGRAM
  27. FLUOXETINE [Concomitant]
     Active Substance: FLUOXETINE HYDROCHLORIDE
     Indication: Depression
     Dosage: 20 MILLIGRAM, QD
  28. FLUOXETINE [Concomitant]
     Active Substance: FLUOXETINE HYDROCHLORIDE
     Indication: Product used for unknown indication
     Dosage: 20 MILLIGRAM
  29. FLUOXETINE [Concomitant]
     Active Substance: FLUOXETINE HYDROCHLORIDE
     Dosage: 20 MILLIGRAM
  30. CARVEDILOL [Concomitant]
     Active Substance: CARVEDILOL
     Indication: Product used for unknown indication
     Dosage: 6.25 MILLIGRAM, BID
  31. CARVEDILOL [Concomitant]
     Active Substance: CARVEDILOL
     Dosage: 6 MILLIGRAM
  32. CARVEDILOL [Concomitant]
     Active Substance: CARVEDILOL
     Dosage: 6 MILLIGRAM
  33. ISOSORBIDE MONONITRATE [Concomitant]
     Active Substance: ISOSORBIDE MONONITRATE
     Indication: Product used for unknown indication
     Dosage: 30 MILLIGRAM, QD
  34. ISOSORBIDE MONONITRATE [Concomitant]
     Active Substance: ISOSORBIDE MONONITRATE
     Dosage: 30 MILLIGRAM
  35. ISOSORBIDE MONONITRATE [Concomitant]
     Active Substance: ISOSORBIDE MONONITRATE
     Dosage: 30 MILLIGRAM
  36. LISINOPRIL [Concomitant]
     Active Substance: LISINOPRIL
     Dosage: 10 MILLIGRAM, QD
  37. BRILINTA [Concomitant]
     Active Substance: TICAGRELOR
     Indication: Product used for unknown indication
     Dosage: 90 MILLIGRAM, BID
  38. BRILINTA [Concomitant]
     Active Substance: TICAGRELOR
     Dosage: 90 MILLIGRAM
  39. BRILINTA [Concomitant]
     Active Substance: TICAGRELOR
     Dosage: 90 MILLIGRAM

REACTIONS (4)
  - Coronary arterial stent insertion [Unknown]
  - Renal disorder [Not Recovered/Not Resolved]
  - Drug dose omission by device [Unknown]
  - Wrong technique in product usage process [Unknown]

NARRATIVE: CASE EVENT DATE: 20230101
